FAERS Safety Report 6620292-8 (Version None)
Quarter: 2010Q1

REPORT INFORMATION
  Report Type: 
  Country: None (occurrence: None)
  Receive Date: 20100223
  Receipt Date: 20091127
  Transmission Date: 20100710
  Serious: No
  Sender: FDA-Public Use
  Company Number: 003346

PATIENT
  Sex: Male

DRUGS (1)
  1. CIMZIA [Suspect]
     Dosage: (400 MG 1X/MONTH SUBCUTANEOUS)
     Route: 058
     Dates: start: 20090417

REACTIONS (1)
  - CONDITION AGGRAVATED [None]
